FAERS Safety Report 6737999-4 (Version None)
Quarter: 2010Q2

REPORT INFORMATION
  Report Type: 
  Country: None (occurrence: None)
  Receive Date: 20100519
  Receipt Date: 20100514
  Transmission Date: 20101027
  Serious: Yes (Death, Life-Threatening, Hospitalization)
  Sender: FDA-Public Use
  Company Number: 2010SP027021

PATIENT
  Age: 67 Year
  Sex: Female
  Weight: 53.6 kg

DRUGS (19)
  1. TEMOZOLOMIDE [Suspect]
     Indication: BREAST CANCER
     Dosage: 100 MG/M2;QD
     Dates: start: 20091123, end: 20100323
  2. ABT-888 [Suspect]
     Indication: BREAST CANCER METASTATIC
     Dosage: 30 MG;Q12H;PO
     Route: 048
     Dates: start: 20091123, end: 20100323
  3. LORAZEPAM [Concomitant]
  4. ASPIRIN [Concomitant]
  5. CITALOPRAM HYDROBROMIDE [Concomitant]
  6. PANTOPRAZOLE [Concomitant]
  7. SPIRONOLACTONE [Concomitant]
  8. FENTANYL [Concomitant]
  9. PARACETAMOL [Concomitant]
  10. PROCHLORPERAZINE EDISYLATE [Concomitant]
  11. EMLA [Concomitant]
  12. MAGNESIUM OXIDE [Concomitant]
  13. WARFARIN SODIUM [Concomitant]
  14. LEVOFLOXACIN [Concomitant]
  15. VANCOMYCIN [Concomitant]
  16. DOXYCYCLINE HYCLATE [Concomitant]
  17. AMOPHOTERICIN B [Concomitant]
  18. BACTRIM [Concomitant]
  19. PREDNISONE TAB [Concomitant]

REACTIONS (4)
  - INTERSTITIAL LUNG DISEASE [None]
  - NOCARDIOSIS [None]
  - PLEURAL EFFUSION [None]
  - PNEUMOCYSTIS JIROVECI PNEUMONIA [None]
